FAERS Safety Report 10694608 (Version 1)
Quarter: 2015Q1

REPORT INFORMATION
  Report Type: Spontaneous
  Country: FR (occurrence: FR)
  Receive Date: 20150107
  Receipt Date: 20150107
  Transmission Date: 20150721
  Serious: Yes (Hospitalization)
  Sender: FDA-Public Use
  Company Number: FR-JNJFOC-20141219474

PATIENT
  Age: 61 Year
  Sex: Male

DRUGS (9)
  1. THERALENE [Suspect]
     Active Substance: TRIMEPRAZINE
     Indication: PRODUCT USED FOR UNKNOWN INDICATION
     Dosage: 15 DROPS, AT NIGHT
     Route: 048
  2. PROPRANOLOL [Suspect]
     Active Substance: PROPRANOLOL\PROPRANOLOL HYDROCHLORIDE
     Indication: HYPERTENSION
     Dosage: IN THE MORNING AND IN THE EVENING
     Route: 048
  3. MODECATE [Suspect]
     Active Substance: FLUPHENAZINE DECANOATE
     Indication: MENTAL DISORDER
     Dosage: DAILY DOSE: 0.1905ML
     Route: 030
  4. MOVICOL [Concomitant]
     Active Substance: POLYETHYLENE GLYCOL 3350\POTASSIUM CHLORIDE\SODIUM BICARBONATE\SODIUM CHLORIDE
     Indication: PRODUCT USED FOR UNKNOWN INDICATION
     Dosage: 1 SACHET IN THE MORNING
     Route: 048
  5. LANSOPRAZOLE. [Concomitant]
     Active Substance: LANSOPRAZOLE
     Indication: PRODUCT USED FOR UNKNOWN INDICATION
     Dosage: 1 TABLET IN THE EVENING
     Route: 048
     Dates: start: 20141020, end: 20141027
  6. ATARAX [Suspect]
     Active Substance: HYDROXYZINE\HYDROXYZINE HYDROCHLORIDE
     Indication: PRODUCT USED FOR UNKNOWN INDICATION
     Dosage: (1 TABLET IN THE MORNING, AND 1 IN THE EVENING).
     Route: 048
  7. COLCHIMAX [Concomitant]
     Active Substance: COLCHICINE\DICYCLOMINE HYDROCHLORIDE
     Indication: PRODUCT USED FOR UNKNOWN INDICATION
     Dosage: 1 TABLET IN THE MID-DAY
     Route: 048
     Dates: start: 20141020, end: 20141027
  8. HALDOL [Suspect]
     Active Substance: HALOPERIDOL
     Indication: MENTAL DISORDER
     Dosage: 5 DROPS IN THE MORNING, 5 IN THE MIDDAY AND 10 IN THE EVENING.
     Route: 048
     Dates: end: 20141013
  9. LEXOMIL [Suspect]
     Active Substance: BROMAZEPAM
     Indication: PRODUCT USED FOR UNKNOWN INDICATION
     Route: 048

REACTIONS (4)
  - Rhabdomyolysis [Recovered/Resolved]
  - Fall [Recovered/Resolved]
  - Salivary hypersecretion [Recovered/Resolved]
  - Movement disorder [Recovered/Resolved]

NARRATIVE: CASE EVENT DATE: 20141013
